FAERS Safety Report 5937495-8 (Version None)
Quarter: 2008Q4

REPORT INFORMATION
  Report Type: 
  Country: None (occurrence: None)
  Receive Date: 20081031
  Receipt Date: 20081030
  Transmission Date: 20090506
  Serious: Yes (Hospitalization)
  Sender: FDA-Public Use
  Company Number: D0059167A

PATIENT
  Age: 61 Year
  Sex: Male
  Weight: 102 kg

DRUGS (5)
  1. AVANDAMET [Suspect]
     Indication: DIABETES MELLITUS
     Route: 048
  2. ENALAPRIL MALEATE [Concomitant]
     Dosage: 5MG IN THE MORNING
     Route: 065
  3. SIMVASTATIN [Concomitant]
     Dosage: 40MG PER DAY
     Route: 065
  4. FALITHROM [Concomitant]
     Route: 065
  5. TORSEMIDE [Concomitant]
     Dosage: 10MG IN THE MORNING
     Route: 065

REACTIONS (3)
  - ATRIAL FIBRILLATION [None]
  - CEREBRAL INFARCTION [None]
  - CORONARY ARTERY DISEASE [None]
